FAERS Safety Report 16715700 (Version 3)
Quarter: 2019Q3

REPORT INFORMATION
  Report Type: Spontaneous
  Country: US (occurrence: US)
  Receive Date: 20190819
  Receipt Date: 20190823
  Transmission Date: 20191005
  Serious: No
  Sender: FDA-Public Use
  Company Number: US-PFIZER INC-2019353693

PATIENT
  Age: 52 Year
  Sex: Female

DRUGS (1)
  1. GABAPENTIN. [Suspect]
     Active Substance: GABAPENTIN
     Indication: PLANTAR FASCIITIS
     Dosage: 200 MG, DAILY (100 MG TWO CAPSULES BY MOUTH NIGHTLY AT BEDTIME)
     Route: 048
     Dates: start: 2015, end: 2017

REACTIONS (5)
  - Mood altered [Unknown]
  - Off label use [Unknown]
  - Burning sensation [Unknown]
  - Somnolence [Unknown]
  - Product use in unapproved indication [Unknown]

NARRATIVE: CASE EVENT DATE: 2015
